FAERS Safety Report 9631313 (Version 1)
Quarter: 2013Q4

REPORT INFORMATION
  Report Type: Spontaneous
  Country: US (occurrence: US)
  Receive Date: 20131018
  Receipt Date: 20131018
  Transmission Date: 20140711
  Serious: No
  Sender: FDA-Public Use
  Company Number: US-009507513-1309USA012402

PATIENT
  Age: 68 Year
  Sex: Female

DRUGS (19)
  1. PROVENTIL [Suspect]
     Indication: CHRONIC OBSTRUCTIVE PULMONARY DISEASE
     Dosage: 2 TO 4 PUFFS EVERY 4 TO 6 HOURS AS NEEDED; INHALATION AEROSOL HFA 90 MCG
     Route: 055
     Dates: start: 2010
  2. PROVENTIL [Suspect]
     Dosage: 2 TO 4 PUFFS EVERY 4 TO 6 HOURS AS NEEDED; INHALATION AEROSOL HFA 90 MCG
     Route: 055
  3. PROVENTIL [Suspect]
     Dosage: 2 TO 4 PUFFS EVERY 4 TO 6 HOURS AS NEEDED; INHALATION AEROSOL HFA 90 MCG
     Route: 055
  4. PROVENTIL [Suspect]
     Dosage: 2 TO 4 PUFFS EVERY 4 TO 6 HOURS AS NEEDED; INHALATION AEROSOL HFA 90 MCG
     Route: 055
  5. PROVENTIL [Suspect]
     Dosage: 2 TO 4 PUFFS EVERY 4 TO 6 HOURS AS NEEDED; INHALATION AEROSOL HFA 90 MCG
     Route: 055
  6. PROVENTIL [Suspect]
     Dosage: 2 TO 4 PUFFS EVERY 4 TO 6 HOURS AS NEEDED; INHALATION AEROSOL HFA 90 MCG
     Route: 055
  7. PROVENTIL [Suspect]
     Dosage: 2 TO 4 PUFFS EVERY 4 TO 6 HOURS AS NEEDED; INHALATION AEROSOL HFA 90 MCG
     Route: 055
  8. PROVENTIL [Suspect]
     Dosage: 2 TO 4 PUFFS EVERY 4 TO 6 HOURS AS NEEDED; INHALATION AEROSOL HFA 90 MCG
     Route: 055
  9. PROVENTIL [Suspect]
     Dosage: 2 TO 4 PUFFS EVERY 4 TO 6 HOURS AS NEEDED; INHALATION AEROSOL HFA 90 MCG
     Route: 055
  10. PROVENTIL [Suspect]
     Dosage: 2 TO 4 PUFFS EVERY 4 TO 6 HOURS AS NEEDED; INHALATION AEROSOL HFA 90 MCG
     Route: 055
  11. PROVENTIL [Suspect]
     Dosage: 2 TO 4 PUFFS EVERY 4 TO 6 HOURS AS NEEDED; INHALATION AEROSOL HFA 90 MCG
     Route: 055
  12. PROVENTIL [Suspect]
     Dosage: 2 TO 4 PUFFS EVERY 4 TO 6 HOURS AS NEEDED; INHALATION AEROSOL HFA 90 MCG
     Route: 055
  13. PROVENTIL [Suspect]
     Dosage: 2 TO 4 PUFFS EVERY 4 TO 6 HOURS AS NEEDED; INHALATION AEROSOL HFA 90 MCG
     Route: 055
     Dates: start: 19660312
  14. PROVENTIL [Suspect]
     Dosage: 2 TO 4 PUFFS EVERY 4 TO 6 HOURS AS NEEDED; INHALATION AEROSOL HFA 90 MCG
     Route: 055
  15. PROVENTIL [Suspect]
     Dosage: 2 TO 4 PUFFS EVERY 4 TO 6 HOURS AS NEEDED; INHALATION AEROSOL HFA 90 MCGUNK
     Route: 055
  16. PROVENTIL [Suspect]
     Dosage: 2 TO 4 PUFFS EVERY 4 TO 6 HOURS AS NEEDED; INHALATION AEROSOL HFA 90 MCG
     Route: 055
  17. PROVENTIL [Suspect]
     Dosage: 2 TO 4 PUFFS EVERY 4 TO 6 HOURS AS NEEDED; INHALATION AEROSOL HFA 90 MCG
     Route: 055
  18. PROVENTIL [Suspect]
     Dosage: 2 TO 4 PUFFS EVERY 4 TO 6 HOURS AS NEEDED; INHALATION AEROSOL HFA 90 MCG
     Route: 055
  19. PROVENTIL [Suspect]
     Dosage: 2 TO 4 PUFFS EVERY 4 TO 6 HOURS AS NEEDED; INHALATION AEROSOL HFA 90 MCG
     Route: 055

REACTIONS (2)
  - Dyspnoea [Not Recovered/Not Resolved]
  - Product packaging quantity issue [Unknown]
